FAERS Safety Report 7938271-7 (Version None)
Quarter: 2011Q4

REPORT INFORMATION
  Report Type: 
  Country: None (occurrence: None)
  Receive Date: 20111123
  Receipt Date: 20111114
  Transmission Date: 20120403
  Serious: Yes (Hospitalization)
  Sender: FDA-Public Use
  Company Number: US-ASTRAZENECA-2011SE49871

PATIENT
  Age: 52 Year
  Sex: Female
  Weight: 107 kg

DRUGS (5)
  1. METFORMIN [Concomitant]
  2. AVANDAMET [Suspect]
     Route: 065
  3. CRESTOR [Suspect]
     Indication: BLOOD CHOLESTEROL ABNORMAL
     Route: 048
  4. OCTIPLUS [Concomitant]
  5. SEROQUEL [Suspect]
     Indication: MENTAL DISORDER
     Route: 048

REACTIONS (1)
  - CEREBROVASCULAR ACCIDENT [None]
